FAERS Safety Report 8642148 (Version 3)
Quarter: 2012Q4

REPORT INFORMATION
  Report Type: 
  Country: JP (occurrence: JP)
  Receive Date: 20120628
  Receipt Date: 20120924
  Transmission Date: 20130627
  Serious: Yes (Death, Hospitalization)
  Sender: FDA-Public Use
  Company Number: JP-MYLANLABS-2012S1012195

PATIENT
  Age: 71 Year
  Sex: Female

DRUGS (2)
  1. CARBOPLATIN [Suspect]
     Indication: OVARIAN CANCER
     Dosage: Daily dose: 640.45 mg/body
     Route: 041
     Dates: start: 20120525, end: 20120525
  2. TAXOL [Suspect]
     Indication: OVARIAN CANCER
     Dosage: Daily dose: 234.5 mg/body
     Route: 041
     Dates: start: 20120525, end: 20120525

REACTIONS (4)
  - Febrile neutropenia [Fatal]
  - Septic shock [Fatal]
  - Abdominal pain [Fatal]
  - Renal failure acute [Fatal]
